FAERS Safety Report 6497858-1 (Version None)
Quarter: 2009Q4

REPORT INFORMATION
  Report Type: 
  Country: None (occurrence: None)
  Receive Date: 20091215
  Receipt Date: 20091203
  Transmission Date: 20100525
  Serious: Yes (Hospitalization)
  Sender: FDA-Public Use
  Company Number: JP-PFIZER INC-2009270460

PATIENT
  Age: 76 Year
  Sex: Male
  Weight: 63.9 kg

DRUGS (8)
  1. SUNITINIB MALATE [Suspect]
     Indication: RENAL CELL CARCINOMA
     Dosage: 37.5 MG, 1X/DAY
     Route: 048
     Dates: start: 20090722
  2. WARFARIN POTASSIUM [Concomitant]
     Dosage: UNK
     Route: 048
     Dates: start: 20090615
  3. SILODOSIN [Concomitant]
     Dosage: UNK
     Route: 048
  4. DOGMATYL [Concomitant]
     Dosage: UNK
     Route: 048
  5. PANTOSIN [Concomitant]
     Dosage: UNK
     Route: 048
  6. MAGNESIUM OXIDE [Concomitant]
     Dosage: UNK
     Route: 048
  7. MUCOSOLVAN [Concomitant]
     Dosage: UNK
     Route: 048
  8. MEDICON [Concomitant]
     Dosage: UNK
     Route: 048

REACTIONS (1)
  - PNEUMONIA [None]
